FAERS Safety Report 24383101 (Version 1)
Quarter: 2024Q3

REPORT INFORMATION
  Report Type: Spontaneous
  Country: US (occurrence: None)
  Receive Date: 20240930
  Receipt Date: 20240930
  Transmission Date: 20241017
  Serious: Yes (Hospitalization)
  Sender: Public
  Company Number: None

PATIENT
  Sex: Female

DRUGS (4)
  1. OPSUMIT [Suspect]
     Active Substance: MACITENTAN
     Indication: Pulmonary arterial hypertension
     Dosage: FREQUENCY : DAILY;?
     Dates: start: 201911
  2. SILDENAFIL CITRATE [Concomitant]
  3. VELETRI SDV [Concomitant]
  4. WINREVAIR SDV [Concomitant]

REACTIONS (1)
  - Complication associated with device [None]
